FAERS Safety Report 19098361 (Version 12)
Quarter: 2021Q4

REPORT INFORMATION
  Report Type: Report from Study
  Country: US (occurrence: US)
  Receive Date: 20210406
  Receipt Date: 20211207
  Transmission Date: 20220304
  Serious: Yes (Other)
  Sender: FDA-Public Use
  Company Number: US-NOVARTISPH-NVSC2021US074703

PATIENT
  Age: 44 Year
  Sex: Female

DRUGS (4)
  1. MAYZENT [Suspect]
     Active Substance: SIPONIMOD
     Indication: Multiple sclerosis relapse
     Dosage: 2 MG, QD (ORAL-VIA MOUTH)
     Route: 048
     Dates: start: 20201209
  2. MAYZENT [Suspect]
     Active Substance: SIPONIMOD
     Indication: Secondary progressive multiple sclerosis
     Dosage: UNK
     Route: 065
  3. MAYZENT [Suspect]
     Active Substance: SIPONIMOD
     Indication: Relapsing-remitting multiple sclerosis
     Dosage: 2 MG
     Route: 048
  4. MAYZENT [Suspect]
     Active Substance: SIPONIMOD
     Indication: Clinically isolated syndrome

REACTIONS (10)
  - Seizure [Unknown]
  - White blood cell count decreased [Unknown]
  - Rash papular [Unknown]
  - Muscle spasticity [Unknown]
  - COVID-19 [Unknown]
  - Fatigue [Unknown]
  - Dysarthria [Unknown]
  - Hepatic enzyme increased [Unknown]
  - Product container seal issue [Unknown]
  - Product use complaint [Unknown]

NARRATIVE: CASE EVENT DATE: 20210328
